FAERS Safety Report 10240311 (Version 3)
Quarter: 2015Q1

REPORT INFORMATION
  Report Type: Spontaneous
  Country: US (occurrence: US)
  Receive Date: 20140617
  Receipt Date: 20150309
  Transmission Date: 20150720
  Serious: No
  Sender: FDA-Public Use
  Company Number: US-ASTRAZENECA-2014SE40228

PATIENT
  Age: 82 Year
  Sex: Female
  Weight: 97.5 kg

DRUGS (16)
  1. ATORVASTATIN [Concomitant]
     Active Substance: ATORVASTATIN
     Indication: BLOOD CHOLESTEROL ABNORMAL
     Route: 048
  2. TIKOSYN [Concomitant]
     Active Substance: DOFETILIDE
     Indication: CARDIAC DISORDER
     Route: 048
     Dates: start: 201309
  3. LEVOTHYROXINE [Concomitant]
     Active Substance: LEVOTHYROXINE
     Indication: THYROID DISORDER
     Route: 048
  4. COUMADIN [Concomitant]
     Active Substance: WARFARIN SODIUM
     Indication: COAGULOPATHY
     Dosage: 5 MG ON EVERY OTHER DAY (MONDAY, WEDNESDAY AND FRIDAY)
     Route: 048
  5. COUMADIN [Concomitant]
     Active Substance: WARFARIN SODIUM
     Indication: COAGULOPATHY
     Dosage: 2.5 MG ON EVERY OTHER DAY (SUNDAY, TUESDAY, THURSDAY AND SATURDAY)
     Route: 048
  6. FUROSIMIDE [Concomitant]
     Active Substance: FUROSEMIDE
     Indication: DIURETIC THERAPY
     Route: 048
     Dates: start: 201308
  7. MONTELUKAST [Concomitant]
     Active Substance: MONTELUKAST SODIUM
     Indication: MULTIPLE ALLERGIES
     Route: 048
     Dates: start: 2013
  8. POTASSIUM CHLORIDE. [Concomitant]
     Active Substance: POTASSIUM CHLORIDE
  9. SYMBICORT [Suspect]
     Active Substance: BUDESONIDE\FORMOTEROL FUMARATE DIHYDRATE
     Indication: ASTHMA
     Dosage: 160/4.5 MCG, 2 PUFFS, TWO TIMES A DAY
     Route: 055
     Dates: start: 20140205
  10. MONTELUKAST [Concomitant]
     Active Substance: MONTELUKAST SODIUM
     Indication: ASTHMA
     Route: 048
     Dates: start: 2013
  11. DIGOXIN. [Concomitant]
     Active Substance: DIGOXIN
     Indication: CARDIAC DISORDER
     Route: 048
     Dates: start: 2013
  12. LOSARTIN/POTASSIUM [Concomitant]
     Indication: DIURETIC THERAPY
     Route: 048
     Dates: start: 201308
  13. METOPROLOL TARTRATE. [Concomitant]
     Active Substance: METOPROLOL TARTRATE
     Indication: BLOOD PRESSURE ABNORMAL
     Dosage: 25 MG EVERY MORNING, 12.5 MG AT NIGHT
     Route: 048
     Dates: start: 2012
  14. DIGOXIN. [Concomitant]
     Active Substance: DIGOXIN
     Indication: CARDIAC DISORDER
     Route: 048
     Dates: start: 2013
  15. PAROXETINE [Concomitant]
     Active Substance: PAROXETINE\PAROXETINE HYDROCHLORIDE
     Indication: ANTIDEPRESSANT THERAPY
     Route: 048
     Dates: start: 2012
  16. TIKOSYN [Concomitant]
     Active Substance: DOFETILIDE
     Indication: ATRIAL FIBRILLATION
     Route: 048
     Dates: start: 201309

REACTIONS (4)
  - Therapy cessation [Not Recovered/Not Resolved]
  - Diarrhoea [Recovered/Resolved]
  - Device misuse [Unknown]
  - Visual impairment [Not Recovered/Not Resolved]

NARRATIVE: CASE EVENT DATE: 201402
